FAERS Safety Report 9253919 (Version 3)
Quarter: 2014Q2

REPORT INFORMATION
  Report Type: Spontaneous
  Country: US (occurrence: None)
  Receive Date: 20130419
  Receipt Date: 20140512
  Transmission Date: 20141212
  Serious: Yes (Hospitalization, Other)
  Sender: FDA-Public Use
  Company Number: 1642624

PATIENT
  Age: 39 Year
  Sex: Female
  Weight: 68.18 kg

DRUGS (1)
  1. PROPOFOL [Suspect]
     Indication: UTERINE DILATION AND CURETTAGE
     Dates: start: 20080610

REACTIONS (16)
  - Amnesia [None]
  - Delayed recovery from anaesthesia [None]
  - Full blood count decreased [None]
  - Post procedural complication [None]
  - Fall [None]
  - Dysarthria [None]
  - Unresponsive to stimuli [None]
  - Aphasia [None]
  - Drug administration error [None]
  - Mental impairment [None]
  - Similar reaction on previous exposure to drug [None]
  - Eye movement disorder [None]
  - Foetal death [None]
  - Pregnancy [None]
  - Maternal exposure before pregnancy [None]
  - Somnolence [None]
